FAERS Safety Report 9713494 (Version 1)
Quarter: 2013Q4

REPORT INFORMATION
  Report Type: Spontaneous
  Country: US (occurrence: None)
  Receive Date: 20131122
  Receipt Date: 20131122
  Transmission Date: 20140711
  Serious: Yes (Life-Threatening, Hospitalization)
  Sender: FDA-Public Use
  Company Number: 2013P1021127

PATIENT
  Age: 27 Year
  Sex: Female

DRUGS (5)
  1. NAPROXEN [Suspect]
     Dosage: X1; PO
     Route: 048
  2. WARFARIN [Suspect]
     Dosage: X1; PO
     Route: 048
  3. OXYCODONE/ACETAMINOPHEN [Suspect]
     Dosage: X1; PO
     Route: 048
  4. IBUPROFEN [Suspect]
     Dosage: X1; PO
     Route: 048
  5. NORTRIPTYLINE [Suspect]
     Dosage: X1; PO
     Route: 048

REACTIONS (6)
  - Suicide attempt [None]
  - Sedation [None]
  - Miosis [None]
  - Tachycardia [None]
  - Gastrointestinal sounds abnormal [None]
  - International normalised ratio increased [None]
